FAERS Safety Report 6934641-4 (Version None)
Quarter: 2010Q3

REPORT INFORMATION
  Report Type: 
  Country: None (occurrence: None)
  Receive Date: 20100820
  Receipt Date: 20100810
  Transmission Date: 20110219
  Serious: Yes (Hospitalization)
  Sender: FDA-Public Use
  Company Number: BR-ABBOTT-10P-020-0663551-00

PATIENT
  Sex: Male
  Weight: 58 kg

DRUGS (9)
  1. HUMIRA [Suspect]
     Indication: CROHN'S DISEASE
     Dosage: (INDUCTION DOSE: 180MG)
     Route: 058
     Dates: start: 20100702
  2. HUMIRA [Suspect]
     Dosage: (80 MG)
  3. HUMIRA [Suspect]
  4. CIPROFLOXACIN [Suspect]
     Indication: PRODUCT USED FOR UNKNOWN INDICATION
     Route: 048
  5. CORTICORTEN [Concomitant]
     Indication: CROHN'S DISEASE
     Route: 048
     Dates: start: 20050101
  6. DIPYRONE [Concomitant]
     Indication: PYREXIA
     Dosage: 35 DROPS DAILY
     Route: 048
     Dates: start: 20100601
  7. DIPYRONE [Concomitant]
     Indication: PAIN
  8. CORTICOID [Concomitant]
     Indication: PRODUCT USED FOR UNKNOWN INDICATION
  9. CORTICOID [Concomitant]
     Dosage: TWICE DURING 3 DAYS WHENHOSPITALIZED

REACTIONS (6)
  - ABDOMINAL DISCOMFORT [None]
  - ANAEMIA [None]
  - GASTROINTESTINAL PAIN [None]
  - INFLAMMATION [None]
  - INTESTINAL MASS [None]
  - PYREXIA [None]
